FAERS Safety Report 14337572 (Version 1)
Quarter: 2017Q4

REPORT INFORMATION
  Report Type: Spontaneous
  Country: US (occurrence: US)
  Receive Date: 20171229
  Receipt Date: 20171229
  Transmission Date: 20180321
  Serious: Yes (Other)
  Sender: FDA-Public Use
  Company Number: US-SA-2017SA267379

PATIENT
  Age: 62 Year
  Sex: Female
  Weight: 119.29 kg

DRUGS (2)
  1. SIMVASTATIN. [Concomitant]
     Active Substance: SIMVASTATIN
     Indication: BLOOD CHOLESTEROL
     Route: 065
     Dates: start: 2009
  2. LANTUS [Suspect]
     Active Substance: INSULIN GLARGINE
     Indication: DIABETES MELLITUS
     Route: 051
     Dates: start: 20010101

REACTIONS (2)
  - Leg amputation [Not Recovered/Not Resolved]
  - Hand amputation [Not Recovered/Not Resolved]

NARRATIVE: CASE EVENT DATE: 20090101
